FAERS Safety Report 17251378 (Version 2)
Quarter: 2020Q1

REPORT INFORMATION
  Report Type: Spontaneous
  Country: CZ (occurrence: CZ)
  Receive Date: 20200109
  Receipt Date: 20200205
  Transmission Date: 20200409
  Serious: Yes (Other)
  Sender: FDA-Public Use
  Company Number: CZ-TEVA-2020-CZ-1165387

PATIENT
  Age: 70 Year
  Sex: Male

DRUGS (4)
  1. 5-FLUOROURACIL [Suspect]
     Active Substance: FLUOROURACIL
     Route: 065
  2. CETUXIMAB. [Suspect]
     Active Substance: CETUXIMAB
     Route: 065
  3. FOLINIC ACID [Suspect]
     Active Substance: LEUCOVORIN
     Indication: RECTOSIGMOID CANCER
     Dosage: 13 CYCLES IN MFOLFOX6 REGIMEN
     Dates: start: 2017, end: 201801
  4. OXALIPLATIN. [Suspect]
     Active Substance: OXALIPLATIN
     Indication: RECTOSIGMOID CANCER
     Dosage: 7 CYCLES IN MFOLFOX6 REGIMEN
     Route: 042
     Dates: start: 2017, end: 2017

REACTIONS (5)
  - Conjunctivitis [Recovered/Resolved]
  - Weight decreased [Recovered/Resolved]
  - Skin toxicity [Recovered/Resolved]
  - Neurotoxicity [Recovered/Resolved]
  - Decreased appetite [Recovered/Resolved]
